FAERS Safety Report 6422623-0 (Version None)
Quarter: 2009Q4

REPORT INFORMATION
  Report Type: 
  Country: None (occurrence: None)
  Receive Date: 20091102
  Receipt Date: 20091001
  Transmission Date: 20100525
  Serious: No
  Sender: FDA-Public Use
  Company Number: US-BAYER-200935735NA

PATIENT
  Age: 65 Year
  Sex: Male

DRUGS (3)
  1. BETAPACE AF [Suspect]
     Indication: ATRIAL FIBRILLATION
     Dates: start: 20050101
  2. BETAPACE AF [Suspect]
  3. BETAPACE AF [Suspect]

REACTIONS (2)
  - BLOOD PRESSURE DECREASED [None]
  - DIZZINESS [None]
